FAERS Safety Report 4901438-6 (Version None)
Quarter: 2006Q1

REPORT INFORMATION
  Report Type: 
  Country: None (occurrence: None)
  Receive Date: 20060206
  Receipt Date: 20060109
  Transmission Date: 20060701
  Serious: Yes (Hospitalization, Disabling)
  Sender: FDA-Public Use
  Company Number: BE-AMGEN-UK164661

PATIENT
  Sex: Male
  Weight: 74 kg

DRUGS (8)
  1. ARANESP [Suspect]
     Indication: ANAEMIA OF MALIGNANT DISEASE
     Route: 058
     Dates: start: 20050908, end: 20051223
  2. BISOPROLOL [Concomitant]
     Route: 065
  3. CARBOPLATIN [Concomitant]
     Route: 065
     Dates: end: 20051025
  4. GEMZAR [Concomitant]
     Route: 065
     Dates: end: 20051025
  5. ENALAPRIL MALEATE [Concomitant]
     Route: 065
  6. HYDROCHLOROTHIAZIDE [Concomitant]
     Route: 065
  7. ZYLORIC [Concomitant]
     Route: 065
  8. GLUCOPHAGE [Concomitant]
     Route: 065

REACTIONS (3)
  - BRONCHOPNEUMONIA [None]
  - CORONARY ARTERY OCCLUSION [None]
  - MYOCARDIAL INFARCTION [None]
